FAERS Safety Report 11787303 (Version 6)
Quarter: 2016Q1

REPORT INFORMATION
  Report Type: Spontaneous
  Country: JP (occurrence: JP)
  Receive Date: 20151130
  Receipt Date: 20160118
  Transmission Date: 20160525
  Serious: Yes (Hospitalization)
  Sender: FDA-Public Use
  Company Number: JP-ELI_LILLY_AND_COMPANY-JP201511004846

PATIENT
  Age: 74 Year
  Sex: Male

DRUGS (3)
  1. PACLITAXEL. [Suspect]
     Active Substance: PACLITAXEL
     Indication: GASTRIC CANCER
     Dosage: 80 MG/M2, OTHER
     Route: 042
     Dates: start: 20151104, end: 20151104
  2. PACLITAXEL. [Suspect]
     Active Substance: PACLITAXEL
     Dosage: 64 MG/M2, OTHER
     Route: 042
     Dates: start: 20151203, end: 20151203
  3. CYRAMZA [Suspect]
     Active Substance: RAMUCIRUMAB
     Indication: GASTRIC CANCER
     Dosage: 8 MG/KG, OTHER
     Route: 042
     Dates: start: 20151104, end: 20151104

REACTIONS (4)
  - Febrile neutropenia [Recovered/Resolved]
  - Ascites [Not Recovered/Not Resolved]
  - Pseudomembranous colitis [Recovered/Resolved]
  - Proteinuria [Recovered/Resolved]

NARRATIVE: CASE EVENT DATE: 20151111
